FAERS Safety Report 5635269-9 (Version None)
Quarter: 2008Q1

REPORT INFORMATION
  Report Type: 
  Country: None (occurrence: None)
  Receive Date: 20080222
  Receipt Date: 20080211
  Transmission Date: 20080703
  Serious: Yes (Hospitalization, Other)
  Sender: FDA-Public Use
  Company Number: DK-PFIZER INC-2007092308

PATIENT
  Sex: Female
  Weight: 65 kg

DRUGS (2)
  1. LYRICA [Suspect]
     Indication: GENERALISED ANXIETY DISORDER
     Route: 048
     Dates: start: 20070809, end: 20071029
  2. AKARIN [Concomitant]
     Route: 048

REACTIONS (4)
  - EYE PAIN [None]
  - HEADACHE [None]
  - SOMATIC DELUSION [None]
  - VISION BLURRED [None]
